FAERS Safety Report 10397441 (Version 1)
Quarter: 2014Q3

REPORT INFORMATION
  Report Type: Report from Study
  Country: VE (occurrence: VE)
  Receive Date: 20140820
  Receipt Date: 20140820
  Transmission Date: 20150326
  Serious: Yes (Death)
  Sender: FDA-Public Use
  Company Number: VE-ABBVIE-14P-178-1274174-00

PATIENT
  Age: 18 Year
  Sex: Female
  Weight: 70 kg

DRUGS (1)
  1. HUMIRA [Suspect]
     Active Substance: ADALIMUMAB
     Indication: ANKYLOSING SPONDYLITIS
     Route: 058
     Dates: start: 201308, end: 201312

REACTIONS (2)
  - Pneumonia [Fatal]
  - Emphysema [Fatal]

NARRATIVE: CASE EVENT DATE: 20140805
